FAERS Safety Report 6170698-9 (Version None)
Quarter: 2009Q2

REPORT INFORMATION
  Report Type: 
  Country: None (occurrence: None)
  Receive Date: 20090428
  Receipt Date: 20090421
  Transmission Date: 20091009
  Serious: Yes (Death, Other)
  Sender: FDA-Public Use
  Company Number: US-CELGENEUS-163-21880-09042131

PATIENT

DRUGS (5)
  1. REVLIMID [Suspect]
     Indication: MYELODYSPLASTIC SYNDROME
     Route: 048
  2. AZACITIDINE [Suspect]
     Indication: DRUG USE FOR UNKNOWN INDICATION
     Route: 065
  3. DEFERASIROX [Suspect]
     Indication: MYELODYSPLASTIC SYNDROME
     Route: 065
  4. DECITABINE [Suspect]
     Indication: MYELODYSPLASTIC SYNDROME
     Route: 065
  5. HYDROXYUREA [Suspect]
     Indication: MYELODYSPLASTIC SYNDROME
     Route: 065

REACTIONS (10)
  - CARDIO-RESPIRATORY ARREST [None]
  - DIARRHOEA [None]
  - DISEASE PROGRESSION [None]
  - HAEMORRHAGE INTRACRANIAL [None]
  - NAUSEA [None]
  - NEUTROPENIA [None]
  - RASH [None]
  - RENAL FAILURE [None]
  - SEPSIS [None]
  - THROMBOCYTOPENIA [None]
